FAERS Safety Report 9189644 (Version 1)
Quarter: 2013Q1

REPORT INFORMATION
  Report Type: Spontaneous
  Country: US (occurrence: US)
  Receive Date: 20130326
  Receipt Date: 20130326
  Transmission Date: 20140127
  Serious: Yes (Hospitalization)
  Sender: FDA-Public Use
  Company Number: US-MYLANLABS-2012S1016873

PATIENT
  Age: 40 Year
  Sex: Male
  Weight: 75.3 kg

DRUGS (14)
  1. FENTANYL TRANSDERMAL SYSTEM [Suspect]
     Indication: BONE CANCER
     Dosage: CHANGED Q48H
     Route: 062
  2. FENTANYL TRANSDERMAL SYSTEM [Suspect]
     Indication: PAIN
     Dosage: CHANGED Q48H
     Route: 062
  3. PROMETHAZINE [Concomitant]
  4. ZOLPIDEM [Concomitant]
  5. METOPROLOL [Concomitant]
     Dates: start: 20120731
  6. LASIX [Concomitant]
  7. DILAUDID [Concomitant]
  8. LORAZEPAM [Concomitant]
  9. REMERON [Concomitant]
  10. ZANTAC [Concomitant]
  11. ZOLOFT [Concomitant]
     Dates: start: 20120731
  12. NORVASC [Concomitant]
     Dates: start: 20120731
  13. THORAZINE /00011901/ [Concomitant]
     Dates: start: 20120731
  14. MIRALAX /00754501/ [Concomitant]
     Dates: start: 20120707

REACTIONS (3)
  - Drug effect decreased [Not Recovered/Not Resolved]
  - Vomiting [Not Recovered/Not Resolved]
  - Nausea [Not Recovered/Not Resolved]
